FAERS Safety Report 21598190 (Version 1)
Quarter: 2022Q4

REPORT INFORMATION
  Report Type: Report from Study
  Country: US (occurrence: US)
  Receive Date: 20221115
  Receipt Date: 20221115
  Transmission Date: 20230112
  Serious: Yes (Hospitalization)
  Sender: FDA-Public Use
  Company Number: US-ABBVIE-4198676

PATIENT

DRUGS (1)
  1. SKYRIZI [Suspect]
     Active Substance: RISANKIZUMAB-RZAA
     Indication: Crohn^s disease
     Dosage: 600MG/10ML SINGLE USE VIAL?INFUSION AT WEEK 0, WEEK 4 AND WEEK 8
     Route: 058

REACTIONS (1)
  - Hospitalisation [Not Recovered/Not Resolved]
